FAERS Safety Report 7106897-9 (Version None)
Quarter: 2010Q4

REPORT INFORMATION
  Report Type: 
  Country: None (occurrence: None)
  Receive Date: 20101116
  Receipt Date: 20101104
  Transmission Date: 20110411
  Serious: No
  Sender: FDA-Public Use
  Company Number: US-ABBOTT-10P-163-0683255-00

PATIENT
  Sex: Female
  Weight: 66.738 kg

DRUGS (9)
  1. SIMCOR [Suspect]
     Indication: DYSLIPIDAEMIA
     Dosage: 500MG/20MG AT BEDTIME
     Route: 048
     Dates: start: 20101004
  2. SIMCOR [Suspect]
     Dosage: 500MG/20MG EVERY OTHER DAY
     Route: 048
  3. IBUPROFEN [Concomitant]
     Indication: PRODUCT USED FOR UNKNOWN INDICATION
     Dosage: 200MG X 2 IN THE MORNING AND 1 IN AFTERNOON
     Route: 048
  4. HYDROCHLOROT [Concomitant]
     Indication: PRODUCT USED FOR UNKNOWN INDICATION
     Route: 048
  5. AMLODIPINE BESYLATE AND BENAZEPRIL HCL [Concomitant]
     Indication: PRODUCT USED FOR UNKNOWN INDICATION
     Dosage: 20/5MG
     Route: 048
  6. CALCIUM WITH MAGNESIUM AND ZINC [Concomitant]
     Indication: PRODUCT USED FOR UNKNOWN INDICATION
     Route: 048
  7. VITAMIN D [Concomitant]
     Indication: PRODUCT USED FOR UNKNOWN INDICATION
     Route: 048
  8. PROVENTIL [Concomitant]
     Indication: PRODUCT USED FOR UNKNOWN INDICATION
     Route: 055
  9. ASMANEX TWISTHALER [Concomitant]
     Indication: PRODUCT USED FOR UNKNOWN INDICATION
     Dosage: 60/220MCG X 1 PUFF DAILY

REACTIONS (7)
  - ALOPECIA [None]
  - CONDITION AGGRAVATED [None]
  - FEELING HOT [None]
  - HAIR TEXTURE ABNORMAL [None]
  - MYALGIA [None]
  - POOR QUALITY SLEEP [None]
  - PRURITUS [None]
